FAERS Safety Report 19679030 (Version 1)
Quarter: 2021Q3

REPORT INFORMATION
  Report Type: Spontaneous
  Country: US (occurrence: US)
  Receive Date: 20210810
  Receipt Date: 20210810
  Transmission Date: 20211014
  Serious: Yes (Life-Threatening, Hospitalization, Other)
  Sender: FDA-Public Use
  Company Number: US-ALEMBIC PHARMACUETICALS LIMITED-2021SCAL000339

PATIENT

DRUGS (4)
  1. SERTRALINE [Concomitant]
     Active Substance: SERTRALINE HYDROCHLORIDE
     Indication: MAJOR DEPRESSION
     Dosage: 200 MILLIGRAM, OD
     Route: 064
  2. BUSPIRONE [Concomitant]
     Active Substance: BUSPIRONE HYDROCHLORIDE
     Indication: MAJOR DEPRESSION
     Dosage: 5 MILLIGRAM, TID
     Route: 064
  3. TRAZODONE [Concomitant]
     Active Substance: TRAZODONE HYDROCHLORIDE
     Indication: MAJOR DEPRESSION
     Dosage: 150 MILLIGRAM, EXTENDED RELEASE TABLET, OD
     Route: 064
  4. VENLAFAXINE [Suspect]
     Active Substance: VENLAFAXINE HYDROCHLORIDE
     Indication: MAJOR DEPRESSION
     Dosage: 150 MILLIGRAM, TID
     Route: 064

REACTIONS (12)
  - Neonatal behavioural syndrome [Recovering/Resolving]
  - Tremor [Recovering/Resolving]
  - Livedo reticularis [Recovering/Resolving]
  - Foetal growth restriction [Unknown]
  - Drug withdrawal syndrome neonatal [Recovering/Resolving]
  - Serotonin syndrome [Recovering/Resolving]
  - Hypertonia [Recovering/Resolving]
  - Feeding disorder [Recovering/Resolving]
  - Myoclonus [Recovering/Resolving]
  - Hypoglycaemia [Recovering/Resolving]
  - Small for dates baby [Unknown]
  - Foetal exposure during pregnancy [Recovering/Resolving]
